FAERS Safety Report 18969716 (Version 9)
Quarter: 2021Q3

REPORT INFORMATION
  Report Type: Report from Study
  Country: NG (occurrence: NG)
  Receive Date: 20210304
  Receipt Date: 20210907
  Transmission Date: 20211014
  Serious: Yes (Hospitalization)
  Sender: FDA-Public Use
  Company Number: NVSC2021NG046512

PATIENT
  Age: 65 Year
  Sex: Female

DRUGS (2)
  1. UPERIO [Suspect]
     Active Substance: SACUBITRIL\VALSARTAN
     Indication: CARDIAC FAILURE CONGESTIVE
     Dosage: 50 MG, BID
     Route: 048
     Dates: start: 202010
  2. UPERIO [Suspect]
     Active Substance: SACUBITRIL\VALSARTAN
     Indication: CONGESTIVE CARDIOMYOPATHY
     Dosage: 50 MG, BID
     Route: 048
     Dates: start: 202006

REACTIONS (5)
  - Oedema [Recovering/Resolving]
  - Insomnia [Recovered/Resolved]
  - Product use in unapproved indication [Unknown]
  - Malaise [Recovering/Resolving]
  - Oedema [Recovered/Resolved]

NARRATIVE: CASE EVENT DATE: 202102
